FAERS Safety Report 4934131-4 (Version None)
Quarter: 2006Q1

REPORT INFORMATION
  Report Type: 
  Country: None (occurrence: None)
  Receive Date: 20060303
  Receipt Date: 20060220
  Transmission Date: 20060701
  Serious: Yes (Hospitalization, Other)
  Sender: FDA-Public Use
  Company Number: 2006025803

PATIENT
  Age: 81 Year
  Sex: Female

DRUGS (16)
  1. DETROL LA [Suspect]
     Indication: BLADDER DISTENSION
     Dosage: 4 MG (4 MG, 1 IN 1 D), ORAL
     Route: 048
     Dates: start: 20050101
  2. FUROSEMIDE [Concomitant]
  3. POTASSIUM (POTASSIUM) [Concomitant]
  4. NEURONTIN [Concomitant]
  5. GABAPENTIN [Concomitant]
  6. OCUVITE (ASCORBIC ACID, RETINOL, TOCOPHEROL) [Concomitant]
  7. XALATAN [Concomitant]
  8. BENICAR [Concomitant]
  9. DILTIAZEM [Concomitant]
  10. NEXIUM [Concomitant]
  11. PROAMATINE [Concomitant]
  12. PINDOLOL [Concomitant]
  13. CLONIDINE [Concomitant]
  14. ASPIRIN [Concomitant]
  15. HUMALOG [Concomitant]
  16. LANTUS [Concomitant]

REACTIONS (5)
  - FLUID RETENTION [None]
  - HEADACHE [None]
  - MALAISE [None]
  - SPEECH DISORDER [None]
  - WEIGHT DECREASED [None]
